FAERS Safety Report 9677590 (Version 1)
Quarter: 2013Q4

REPORT INFORMATION
  Report Type: Report from Study
  Country: US (occurrence: US)
  Receive Date: 20131108
  Receipt Date: 20131108
  Transmission Date: 20140711
  Serious: Yes (Hospitalization)
  Sender: FDA-Public Use
  Company Number: US-ROCHE-1298063

PATIENT
  Age: 75 Year
  Sex: Male

DRUGS (1)
  1. AVASTIN [Suspect]
     Indication: NON-SMALL CELL LUNG CANCER
     Route: 042
     Dates: start: 20130917

REACTIONS (4)
  - Gastric haemorrhage [Recovered/Resolved]
  - Transient ischaemic attack [Recovered/Resolved]
  - Convulsion [Recovered/Resolved]
  - Weight decreased [Not Recovered/Not Resolved]
